FAERS Safety Report 23108260 (Version 3)
Quarter: 2024Q3

REPORT INFORMATION
  Report Type: Report from Study
  Country: CO (occurrence: CO)
  Receive Date: 20231026
  Receipt Date: 20240705
  Transmission Date: 20241017
  Serious: Yes (Hospitalization)
  Sender: REGENERON
  Company Number: CO-BAYER-2023A151713

PATIENT
  Sex: Male

DRUGS (4)
  1. EYLEA [Suspect]
     Active Substance: AFLIBERCEPT
     Indication: Diabetic retinal oedema
     Dosage: 2 MG (MONTHLY FOR 5 MONTHS, THEN EVERY 2 MONTHS THEREAFTER), SOLUTION FOR INJECTION, 40MG/ML
     Route: 031
     Dates: start: 20230718, end: 20230718
  2. EYLEA [Suspect]
     Active Substance: AFLIBERCEPT
     Dosage: 2 MG, VIAL OF 40 MG/ML WITH AFLIBERCEPT, SOLUTION FOR INJECTION, 40MG/ML
     Route: 031
     Dates: start: 20230909, end: 20230909
  3. EYLEA [Suspect]
     Active Substance: AFLIBERCEPT
     Dosage: 2 MG EVERY MONTH FOR 5 MONTHS LEFT EYE , SOLUTION FOR INJECTION, 40MG/ML
     Route: 031
     Dates: start: 20230919, end: 20230919
  4. EYLEA [Suspect]
     Active Substance: AFLIBERCEPT
     Dosage: 2 MG, VIAL OF 40 MG/ML WITH AFLIBERCEPT, SOLUTION FOR INJECTION, 40MG/ML
     Route: 031
     Dates: start: 20231111

REACTIONS (3)
  - Hospitalisation [Unknown]
  - Inappropriate schedule of product administration [Not Recovered/Not Resolved]
  - Inappropriate schedule of product administration [Not Recovered/Not Resolved]

NARRATIVE: CASE EVENT DATE: 20230818
